FAERS Safety Report 20816268 (Version 1)
Quarter: 2022Q2

REPORT INFORMATION
  Report Type: Spontaneous
  Country: US (occurrence: US)
  Receive Date: 20220511
  Receipt Date: 20220511
  Transmission Date: 20220721
  Serious: Yes (Other)
  Sender: FDA-Public Use
  Company Number: US-BRISTOL-MYERS SQUIBB COMPANY-2022-030691

PATIENT
  Age: 64 Year
  Sex: Female
  Weight: 56.7 kg

DRUGS (22)
  1. POMALYST [Suspect]
     Active Substance: POMALIDOMIDE
     Indication: Plasma cell myeloma
     Dosage: DOSE : 4 MG;     FREQ : ONCE DAILY X 21 DAYS ON (INITIALLY)ONCE DAILY X 14 DAYS ON, 14 DAYS OFF (CUR
     Route: 048
     Dates: start: 201905
  2. POMALYST [Suspect]
     Active Substance: POMALIDOMIDE
     Dosage: DOSE : 4 MG;     FREQ : ONCE DAILY X 21 DAYS ON (INITIALLY)ONCE DAILY X 14 DAYS ON, 14 DAYS OFF (CUR
     Route: 065
  3. ACYCLOVIR [Concomitant]
     Active Substance: ACYCLOVIR
  4. ATORVASTATIN [Concomitant]
     Active Substance: ATORVASTATIN
     Dosage: QPM
  5. CLOPIDOGREL [Concomitant]
     Active Substance: CLOPIDOGREL BISULFATE
     Indication: Myocardial infarction
  6. ASPIRIN [Concomitant]
     Active Substance: ASPIRIN
     Indication: Myocardial infarction
  7. ELIQUIS [Concomitant]
     Active Substance: APIXABAN
     Indication: Thrombosis
     Route: 048
  8. GABAPENTIN [Concomitant]
     Active Substance: GABAPENTIN
  9. METFORMIN [Concomitant]
     Active Substance: METFORMIN HYDROCHLORIDE
  10. GLIMEPIRIDE [Concomitant]
     Active Substance: GLIMEPIRIDE
     Dosage: 2 TABLETS QAM
  11. LISINOPRIL [Concomitant]
     Active Substance: LISINOPRIL
  12. METOPROLOL [Concomitant]
     Active Substance: METOPROLOL
     Dosage: QAM
  13. DEXAMETHASONE [Concomitant]
     Active Substance: DEXAMETHASONE
  14. DALIRESP [Concomitant]
     Active Substance: ROFLUMILAST
  15. KLOR-CON [Concomitant]
     Active Substance: POTASSIUM CHLORIDE
     Indication: Diarrhoea
     Dosage: IT^S PRESCRIBED TWICE A DAY BUT I^M NOT TAKING THE WATER PILLS SO I TAKING IT ONLY ONCE A DAY
  16. KLOR-CON [Concomitant]
     Active Substance: POTASSIUM CHLORIDE
     Indication: Blood potassium decreased
  17. TRELEGY ELLIPTA [Concomitant]
     Active Substance: FLUTICASONE FUROATE\UMECLIDINIUM BROMIDE\VILANTEROL TRIFENATATE
  18. ALBUTEROL SULFATE [Concomitant]
     Active Substance: ALBUTEROL SULFATE
     Dosage: AS NEEDED,
  19. FLONASE [Concomitant]
     Active Substance: FLUTICASONE PROPIONATE
     Dosage: IN EACH NOSTRIL
  20. IMODIUM [Concomitant]
     Active Substance: LOPERAMIDE HYDROCHLORIDE
  21. CHOLECALCIFEROL [Concomitant]
     Active Substance: CHOLECALCIFEROL
  22. ALENDRONATE [Concomitant]
     Active Substance: ALENDRONATE SODIUM
     Indication: Osteoporosis

REACTIONS (9)
  - Diarrhoea [Unknown]
  - Irritable bowel syndrome [Unknown]
  - Productive cough [Unknown]
  - Diarrhoea [Unknown]
  - Pollakiuria [Unknown]
  - Chronic obstructive pulmonary disease [Unknown]
  - Asthma [Unknown]
  - Osteoporosis [Unknown]
  - Spinal fracture [Unknown]
